FAERS Safety Report 6712275-4 (Version None)
Quarter: 2010Q2

REPORT INFORMATION
  Report Type: 
  Country: None (occurrence: None)
  Receive Date: 20100505
  Receipt Date: 20100422
  Transmission Date: 20101027
  Serious: No
  Sender: FDA-Public Use
  Company Number: AU-ELI_LILLY_AND_COMPANY-AU200912002223

PATIENT
  Sex: Male

DRUGS (1)
  1. CYMBALTA [Suspect]
     Indication: DEPRESSION
     Dosage: 60 MG, UNKNOWN
     Route: 065
     Dates: start: 20090511, end: 20091207

REACTIONS (4)
  - BLOOD BILIRUBIN INCREASED [None]
  - BURNING SENSATION [None]
  - HEPATIC FUNCTION ABNORMAL [None]
  - PRURITUS [None]
